FAERS Safety Report 25329135 (Version 1)
Quarter: 2025Q2

REPORT INFORMATION
  Report Type: Spontaneous
  Country: IT (occurrence: IT)
  Receive Date: 20250519
  Receipt Date: 20250519
  Transmission Date: 20250717
  Serious: Yes (Hospitalization)
  Sender: UNICHEM
  Company Number: IT-UNICHEM LABORATORIES LIMITED-UNI-2025-IT-002260

PATIENT

DRUGS (1)
  1. LACOSAMIDE [Interacting]
     Active Substance: LACOSAMIDE
     Indication: Seizure
     Route: 065

REACTIONS (3)
  - Blood creatine phosphokinase increased [Recovering/Resolving]
  - Drug interaction [Recovering/Resolving]
  - Myalgia [Unknown]
